FAERS Safety Report 6562805-0 (Version None)
Quarter: 2010Q1

REPORT INFORMATION
  Report Type: 
  Country: None (occurrence: None)
  Receive Date: 20100130
  Receipt Date: 20091121
  Transmission Date: 20100710
  Serious: No
  Sender: FDA-Public Use
  Company Number: US-ABBOTT-09P-163-0610660-00

PATIENT
  Sex: Male
  Weight: 63.56 kg

DRUGS (10)
  1. HUMIRA [Suspect]
     Indication: CROHN'S DISEASE
     Dates: start: 20090801
  2. ACCUTANE [Suspect]
     Indication: ACNE
     Dates: start: 20090701, end: 20091001
  3. ACCUTANE [Suspect]
     Dates: start: 20091001
  4. METHOTREXATE [Concomitant]
     Indication: CROHN'S DISEASE
  5. PENTASA [Concomitant]
     Indication: CROHN'S DISEASE
  6. SINGULAIR [Concomitant]
     Indication: DRUG USE FOR UNKNOWN INDICATION
  7. ADVAIR DISKUS 100/50 [Concomitant]
     Indication: ASTHMA
  8. ZYRTEC [Concomitant]
     Indication: DRUG USE FOR UNKNOWN INDICATION
  9. NASACORT [Concomitant]
     Indication: HYPERSENSITIVITY
  10. FOLIC ACID [Concomitant]
     Indication: CROHN'S DISEASE

REACTIONS (6)
  - BRONCHITIS [None]
  - CHEST DISCOMFORT [None]
  - EPISTAXIS [None]
  - HAEMOPTYSIS [None]
  - HAEMORRHAGE [None]
  - NIGHT SWEATS [None]
